FAERS Safety Report 8829909 (Version 1)
Quarter: 2012Q4

REPORT INFORMATION
  Report Type: 
  Country: DE (occurrence: DE)
  Receive Date: 20121008
  Receipt Date: 20121008
  Transmission Date: 20130627
  Serious: Yes (Hospitalization)
  Sender: FDA-Public Use
  Company Number: PHHY2012DE088264

PATIENT
  Sex: Male

DRUGS (9)
  1. VOLTAREN [Suspect]
     Indication: PROCEDURAL PAIN
     Dates: start: 201208, end: 201208
  2. DAXAS [Concomitant]
     Indication: CHRONIC OBSTRUCTIVE PULMONARY DISEASE
     Dosage: 1 DF, ONCE/SINGLE
  3. LEVOTHYROXINE [Concomitant]
     Dosage: 150 ug, ONCE/SINGLE
  4. SPIRIVA [Concomitant]
     Indication: CHRONIC OBSTRUCTIVE PULMONARY DISEASE
     Dosage: 1 DF, ONCE/SINGLE
  5. VIANI [Concomitant]
     Indication: CHRONIC OBSTRUCTIVE PULMONARY DISEASE
     Dosage: 1 DF, BID
  6. PRAVASTATIN [Concomitant]
     Dosage: 20 mg, ONCE/SINGLE
  7. DYTIDE H [Concomitant]
     Dosage: 0.5 DF, per day
  8. ALLOPURINOL [Concomitant]
     Dates: start: 2009
  9. STEROIDS [Concomitant]
     Indication: CHRONIC OBSTRUCTIVE PULMONARY DISEASE

REACTIONS (5)
  - Oral candidiasis [Recovering/Resolving]
  - Dysgeusia [Recovering/Resolving]
  - Hypophagia [Recovering/Resolving]
  - Weight decreased [Recovering/Resolving]
  - Syncope [Recovering/Resolving]
